FAERS Safety Report 16379120 (Version 1)
Quarter: 2019Q2

REPORT INFORMATION
  Report Type: Spontaneous
  Country: CA (occurrence: CA)
  Receive Date: 20190531
  Receipt Date: 20190531
  Transmission Date: 20190711
  Serious: Yes (Other)
  Sender: FDA-Public Use
  Company Number: CA-TEVA-2019-CA-1057859

PATIENT
  Sex: Female

DRUGS (1)
  1. VALSARTAN. [Suspect]
     Active Substance: VALSARTAN
     Route: 048

REACTIONS (5)
  - Thyroid mass [Unknown]
  - Renal disorder [Unknown]
  - Product contamination chemical [Unknown]
  - Psychotic disorder [Unknown]
  - Recalled product administered [Unknown]
